FAERS Safety Report 24990918 (Version 1)
Quarter: 2025Q1

REPORT INFORMATION
  Report Type: Spontaneous
  Country: US (occurrence: US)
  Receive Date: 20250220
  Receipt Date: 20250220
  Transmission Date: 20250409
  Serious: No
  Sender: BIOGEN
  Company Number: US-BIOGENIDEC-2015BI027067

PATIENT
  Sex: Female

DRUGS (1)
  1. TYSABRI [Suspect]
     Active Substance: NATALIZUMAB
     Indication: Multiple sclerosis
     Route: 050
     Dates: start: 20140717

REACTIONS (4)
  - Injection site rash [Unknown]
  - Multiple allergies [Unknown]
  - Nausea [Unknown]
  - Rash [Unknown]
